FAERS Safety Report 11890164 (Version 2)
Quarter: 2016Q1

REPORT INFORMATION
  Report Type: Spontaneous
  Country: FR (occurrence: FR)
  Receive Date: 20160105
  Receipt Date: 20160307
  Transmission Date: 20160526
  Serious: Yes (Hospitalization)
  Sender: FDA-Public Use
  Company Number: FR-TEVA-622072ISR

PATIENT
  Age: 64 Year
  Sex: Male

DRUGS (8)
  1. METHOTREXATE (METHOTREXATE SODIUM) [Suspect]
     Active Substance: METHOTREXATE SODIUM
     Indication: TRANSITIONAL CELL CARCINOMA
     Dosage: 65 MILLIGRAM DAILY; FIRST COURSE OF CHEMOTHERAPY
     Route: 041
     Dates: start: 20051203, end: 20051203
  2. NEBIVOLOL. [Concomitant]
     Active Substance: NEBIVOLOL
  3. SIMVASTATINE [Concomitant]
     Active Substance: SIMVASTATIN
  4. CISPLATINE MYLAN [Suspect]
     Active Substance: CISPLATIN
     Indication: TRANSITIONAL CELL CARCINOMA
     Route: 041
     Dates: start: 20151204, end: 20151204
  5. ESIDREX 25 MG [Concomitant]
  6. DOXORUBICINE TEVA [Suspect]
     Active Substance: DOXORUBICIN
     Indication: TRANSITIONAL CELL CARCINOMA
     Route: 041
     Dates: start: 20151204, end: 20151204
  7. LERCANIDIPINE [Concomitant]
     Active Substance: LERCANIDIPINE
  8. VELBE 10 MG [Suspect]
     Active Substance: VINBLASTINE SULFATE
     Indication: TRANSITIONAL CELL CARCINOMA
     Route: 041
     Dates: start: 20151204, end: 20151204

REACTIONS (2)
  - Acute kidney injury [Unknown]
  - Dialysis [Unknown]

NARRATIVE: CASE EVENT DATE: 20151214
